FAERS Safety Report 7764867-1 (Version None)
Quarter: 2011Q3

REPORT INFORMATION
  Report Type: 
  Country: None (occurrence: None)
  Receive Date: 20110921
  Receipt Date: 20110906
  Transmission Date: 20111222
  Serious: Yes (Hospitalization)
  Sender: FDA-Public Use
  Company Number: JP-JNJFOC-20110807921

PATIENT
  Sex: Female

DRUGS (6)
  1. ZYRTEC [Suspect]
     Indication: ECZEMA
     Route: 048
     Dates: start: 20110627, end: 20110628
  2. TICLOPIDINE HCL [Suspect]
     Indication: LACUNAR INFARCTION
     Route: 048
     Dates: start: 20110511, end: 20110628
  3. NIPOLAZIN [Suspect]
     Indication: PRODUCT USED FOR UNKNOWN INDICATION
     Route: 048
  4. ZYRTEC [Suspect]
     Route: 048
  5. DIOVAN [Suspect]
     Indication: HYPERTENSION
     Route: 048
     Dates: start: 20110511, end: 20110628
  6. EXFORGE [Suspect]
     Indication: HYPERTENSION
     Route: 048
     Dates: start: 20110601, end: 20110628

REACTIONS (1)
  - LIVER DISORDER [None]
